FAERS Safety Report 6936264-X (Version None)
Quarter: 2010Q3

REPORT INFORMATION
  Report Type: 
  Country: None (occurrence: None)
  Receive Date: 20100823
  Receipt Date: 20100811
  Transmission Date: 20110219
  Serious: Yes (Other)
  Sender: FDA-Public Use
  Company Number: US-SANOFI-AVENTIS-2010SA048455

PATIENT
  Age: 69 Year
  Sex: Female

DRUGS (2)
  1. AMBIEN CR [Suspect]
     Indication: SLEEP DISORDER
     Route: 048
     Dates: start: 20100301
  2. GABAPENTIN [Suspect]
     Route: 065

REACTIONS (5)
  - BURNING SENSATION [None]
  - CHONDROPATHY [None]
  - DRUG INEFFECTIVE [None]
  - DRUG INTERACTION [None]
  - TREMOR [None]
